FAERS Safety Report 6630461-9 (Version None)
Quarter: 2010Q1

REPORT INFORMATION
  Report Type: 
  Country: None (occurrence: None)
  Receive Date: 20100311
  Receipt Date: 20090623
  Transmission Date: 20100710
  Serious: No
  Sender: FDA-Public Use
  Company Number: US-BIOGENIDEC-2009BI019196

PATIENT
  Age: 49 Year
  Sex: Female

DRUGS (2)
  1. AVONEX [Suspect]
     Indication: MULTIPLE SCLEROSIS
     Route: 030
     Dates: start: 19960101, end: 19970101
  2. AVONEX [Suspect]
     Route: 030
     Dates: start: 20090612

REACTIONS (15)
  - ANXIETY [None]
  - CONTUSION [None]
  - COUGH [None]
  - EAR DISCOMFORT [None]
  - ERYTHEMA [None]
  - FALL [None]
  - HEMIPARESIS [None]
  - HEMIPLEGIA [None]
  - JOINT STIFFNESS [None]
  - MOUTH INJURY [None]
  - MUSCLE CONTRACTIONS INVOLUNTARY [None]
  - MUSCLE SPASMS [None]
  - PAIN [None]
  - STRESS [None]
  - VOMITING [None]
